FAERS Safety Report 5704210-2 (Version None)
Quarter: 2008Q2

REPORT INFORMATION
  Report Type: 
  Country: None (occurrence: None)
  Receive Date: 20080414
  Receipt Date: 20080314
  Transmission Date: 20081010
  Serious: No
  Sender: FDA-Public Use
  Company Number: US-BAYER-200816900NA

PATIENT
  Age: 36 Year
  Sex: Male
  Weight: 108 kg

DRUGS (1)
  1. MAGNEVIST [Suspect]
     Indication: NUCLEAR MAGNETIC RESONANCE IMAGING
     Dosage: TOTAL DAILY DOSE: 5 ML  UNIT DOSE: 15 ML
     Route: 042
     Dates: start: 20080228, end: 20080228

REACTIONS (2)
  - PAIN IN EXTREMITY [None]
  - VESSEL PUNCTURE SITE PAIN [None]
